FAERS Safety Report 7287592-2 (Version None)
Quarter: 2011Q1

REPORT INFORMATION
  Report Type: 
  Country: None (occurrence: None)
  Receive Date: 20110211
  Receipt Date: 20110203
  Transmission Date: 20110831
  Serious: Yes (Hospitalization)
  Sender: FDA-Public Use
  Company Number: GB-NAPPMUNDI-GBR-2011-0007706

PATIENT
  Sex: Male

DRUGS (1)
  1. OXYCODONE HCL [Suspect]
     Indication: WRONG DRUG ADMINISTERED

REACTIONS (3)
  - MUSCLE TWITCHING [None]
  - SOMNOLENCE [None]
  - WRONG DRUG ADMINISTERED [None]
